FAERS Safety Report 6265111-7 (Version None)
Quarter: 2009Q2

REPORT INFORMATION
  Report Type: 
  Country: None (occurrence: None)
  Receive Date: 20090609
  Receipt Date: 20090609
  Transmission Date: 20091009
  Serious: Yes (Life-Threatening)
  Sender: FDA-Public Use
  Company Number: None

PATIENT
  Sex: Female
  Weight: 68.0396 kg

DRUGS (1)
  1. CIPROFLOXACIN [Suspect]
     Indication: URINARY TRACT DISORDER
     Dosage: 500MG BID 7 DAYS
     Dates: start: 20090525, end: 20090603

REACTIONS (7)
  - DERMATITIS [None]
  - INCORRECT DOSE ADMINISTERED [None]
  - PAIN IN EXTREMITY [None]
  - PALPITATIONS [None]
  - SKIN DISORDER [None]
  - TREATMENT NONCOMPLIANCE [None]
  - VISION BLURRED [None]
